FAERS Safety Report 10753219 (Version 2)
Quarter: 2015Q1

REPORT INFORMATION
  Report Type: Spontaneous
  Country: US (occurrence: US)
  Receive Date: 20150130
  Receipt Date: 20150224
  Transmission Date: 20150721
  Serious: Yes (Hospitalization, Other)
  Sender: FDA-Public Use
  Company Number: US-GILEAD-2015-0134608

PATIENT
  Age: 62 Year
  Sex: Female
  Weight: 87.53 kg

DRUGS (9)
  1. SEROQUEL [Concomitant]
     Active Substance: QUETIAPINE FUMARATE
     Indication: DEPRESSION
     Dosage: 200 MG, UNK
     Route: 048
     Dates: start: 20140528
  2. RIBAVIRIN. [Suspect]
     Active Substance: RIBAVIRIN
     Indication: HEPATITIS C
     Dosage: 600 MG, QD
     Route: 048
     Dates: start: 20140828, end: 20150128
  3. PROTONIX [Concomitant]
     Active Substance: PANTOPRAZOLE SODIUM
     Indication: GASTROOESOPHAGEAL REFLUX DISEASE
     Dosage: 40 MG, UNK
     Route: 048
     Dates: start: 20140528
  4. TRAZODONE [Concomitant]
     Active Substance: TRAZODONE HYDROCHLORIDE
     Indication: SOMNOLENCE
     Dosage: 100 MG, UNK
     Route: 048
     Dates: start: 20140528
  5. MIRALAX [Concomitant]
     Active Substance: POLYETHYLENE GLYCOL 3350
     Indication: CONSTIPATION
     Dosage: 1 DF, UNK
     Route: 048
     Dates: start: 20140528
  6. SOVALDI [Suspect]
     Active Substance: SOFOSBUVIR
     Indication: HEPATITIS C
     Dosage: 400 MG, QD
     Route: 048
     Dates: start: 20140828, end: 20150128
  7. OLYSIO [Suspect]
     Active Substance: SIMEPREVIR
     Indication: HEPATITIS C
     Dosage: 150 MG, QD
     Route: 048
     Dates: start: 20140828, end: 20150128
  8. LEXAPRO [Concomitant]
     Active Substance: ESCITALOPRAM OXALATE
     Indication: DEPRESSION
     Dosage: 20 MG, UNK
     Route: 048
     Dates: start: 20140528
  9. LAMICTAL [Concomitant]
     Active Substance: LAMOTRIGINE
     Indication: DEPRESSION
     Dosage: 100 MG, UNK
     Route: 048
     Dates: start: 20140528

REACTIONS (1)
  - Pancreatitis [Recovered/Resolved]
